FAERS Safety Report 7001868-5 (Version None)
Quarter: 2010Q3

REPORT INFORMATION
  Report Type: 
  Country: None (occurrence: None)
  Receive Date: 20100920
  Receipt Date: 20100913
  Transmission Date: 20110219
  Serious: Yes (Hospitalization)
  Sender: FDA-Public Use
  Company Number: CA-MERCK-1009USA03242

PATIENT
  Age: 78 Year
  Sex: Male

DRUGS (3)
  1. ZETIA [Suspect]
     Route: 048
  2. CRESTOR [Concomitant]
     Route: 065
  3. RAMIPRIL [Concomitant]
     Route: 065

REACTIONS (3)
  - ABDOMINAL PAIN [None]
  - LIPASE ABNORMAL [None]
  - PANCREATITIS [None]
